FAERS Safety Report 25193486 (Version 1)
Quarter: 2025Q2

REPORT INFORMATION
  Report Type: Spontaneous
  Country: DE (occurrence: DE)
  Receive Date: 20250414
  Receipt Date: 20250414
  Transmission Date: 20250716
  Serious: Yes (Disabling)
  Sender: Harrow Health
  Company Number: DE-HARROW-HAR-2025-DE-00090

PATIENT
  Sex: Female
  Weight: 53 kg

DRUGS (1)
  1. TRIESENCE [Suspect]
     Active Substance: TRIAMCINOLONE ACETONIDE
     Indication: Uveitis
     Route: 047
     Dates: start: 20231025, end: 20231025

REACTIONS (8)
  - Injection site atrophy [Not Recovered/Not Resolved]
  - Atrophy [Not Recovered/Not Resolved]
  - Swelling [Recovered/Resolved]
  - Haematoma [Unknown]
  - Dark circles under eyes [Not Recovered/Not Resolved]
  - Lacrimal disorder [Recovered/Resolved]
  - Off label use [Recovered/Resolved]
  - Intentional product use issue [Recovered/Resolved]

NARRATIVE: CASE EVENT DATE: 20241025
